FAERS Safety Report 6274801-1 (Version None)
Quarter: 2009Q3

REPORT INFORMATION
  Report Type: 
  Country: None (occurrence: None)
  Receive Date: 20090721
  Receipt Date: 20090710
  Transmission Date: 20100115
  Serious: Yes (Hospitalization, Other)
  Sender: FDA-Public Use
  Company Number: US-ELI_LILLY_AND_COMPANY-US200906004664

PATIENT
  Sex: Female
  Weight: 55.782 kg

DRUGS (16)
  1. BYETTA [Suspect]
     Indication: TYPE 2 DIABETES MELLITUS
     Dosage: 5 UG, 2/D
     Route: 058
     Dates: start: 20060101, end: 20060101
  2. BYETTA [Suspect]
     Dosage: 10 UG, 2/D
     Route: 058
     Dates: start: 20060101
  3. ASPIRIN [Concomitant]
     Indication: ANTICOAGULANT THERAPY
     Dosage: 81 MG, UNK
  4. LISINOPRIL [Concomitant]
     Indication: BLOOD PRESSURE
     Dosage: 10 MG, UNK
  5. FISH OIL [Concomitant]
     Indication: SUPPLEMENTATION THERAPY
     Dosage: 200 MG, 2/D
  6. ASCORBIC ACID [Concomitant]
     Indication: SUPPLEMENTATION THERAPY
     Dosage: 500 MG, DAILY (1/D)
  7. ZOLPIDEM [Concomitant]
     Indication: SLEEP DISORDER
     Dosage: 10 MG, EACH EVENING
     Dates: start: 20080601
  8. ALPRAZOLAM [Concomitant]
     Indication: ANXIETY
     Dosage: 0.25 MG, 2/D
     Dates: start: 20090601
  9. LANTUS [Concomitant]
     Indication: TYPE 2 DIABETES MELLITUS
     Dosage: 35 U, EACH EVENING
     Dates: start: 20070101
  10. CITALOPRAM HYDROBROMIDE [Concomitant]
     Indication: ANTIDEPRESSANT THERAPY
     Dosage: 40 MG, EACH EVENING
  11. IRON [Concomitant]
     Indication: BLOOD IRON
     Dosage: 325 MG, UNK
     Dates: start: 20090601
  12. LASIX [Concomitant]
     Dosage: 80 MG, AS NEEDED
     Dates: end: 20090501
  13. LASIX [Concomitant]
     Dosage: 40 MG, DAILY (1/D)
     Dates: start: 20090501
  14. COREG [Concomitant]
     Dosage: 25 MG, 2/D
     Dates: end: 20090501
  15. COREG [Concomitant]
     Dosage: 6.25 MG, 2/D
     Dates: start: 20090501
  16. DIGOXIN [Concomitant]
     Dosage: 0.125 MG, DAILY (1/D)
     Dates: end: 20090501

REACTIONS (6)
  - BLOOD CHOLESTEROL INCREASED [None]
  - CARDIAC FAILURE CONGESTIVE [None]
  - CHOLECYSTITIS [None]
  - OFF LABEL USE [None]
  - PERICARDITIS [None]
  - SEROSITIS [None]
